FAERS Safety Report 6894871-7 (Version None)
Quarter: 2010Q3

REPORT INFORMATION
  Report Type: 
  Country: None (occurrence: None)
  Receive Date: 20100802
  Receipt Date: 20100719
  Transmission Date: 20110219
  Serious: Yes (Hospitalization)
  Sender: FDA-Public Use
  Company Number: US-ROCHE-693592

PATIENT
  Sex: Female
  Weight: 108.2 kg

DRUGS (21)
  1. BEVACIZUMAB [Suspect]
     Dosage: ON DAYS 1 AND 15.
     Route: 042
     Dates: start: 20090918, end: 20091230
  2. TEMSIROLIMUS [Suspect]
     Dosage: ON DAYS 1, 8, 15 AND 22.
     Route: 042
     Dates: start: 20090918, end: 20100113
  3. EMLA [Concomitant]
  4. M.V.I. [Concomitant]
  5. CITALOPRAM HYDROBROMIDE [Concomitant]
  6. LASIX [Concomitant]
  7. BYSTOLIC [Concomitant]
  8. COZAAR [Concomitant]
  9. NORVASC [Concomitant]
  10. MARINOL [Concomitant]
  11. REGLAN [Concomitant]
  12. ALBUTEROL [Concomitant]
  13. ATROVENT [Concomitant]
  14. ARIXTRA [Concomitant]
  15. PREDNISONE [Concomitant]
  16. PROCRIT [Concomitant]
  17. LACTULOSE [Concomitant]
  18. PHENERGAN [Concomitant]
  19. XOPENEX [Concomitant]
  20. HYDROCORTISONE ACETATE [Concomitant]
  21. PROBIOTIC COMPLEX [Concomitant]

REACTIONS (4)
  - BLOOD CREATININE INCREASED [None]
  - DIARRHOEA [None]
  - PERINEAL FISTULA [None]
  - PROCTALGIA [None]
